FAERS Safety Report 9242876 (Version 1)
Quarter: 2013Q2

REPORT INFORMATION
  Report Type: Spontaneous
  Country: US (occurrence: RO)
  Receive Date: 20130419
  Receipt Date: 20130419
  Transmission Date: 20140414
  Serious: Yes (Hospitalization)
  Sender: FDA-Public Use
  Company Number: US-BAXTER-2013BAX014018

PATIENT
  Age: 45 Year
  Sex: Female
  Weight: 125.7 kg

DRUGS (6)
  1. ENDOXAN 1G [Suspect]
     Indication: METASTASES TO PLEURA
     Route: 042
     Dates: start: 20130131, end: 20130131
  2. NEULASTA [Suspect]
     Indication: PRODUCT USED FOR UNKNOWN INDICATION
     Route: 058
     Dates: start: 20130201, end: 20130201
  3. MYOCET [Suspect]
     Indication: METASTASES TO PLEURA
     Route: 042
     Dates: start: 20130131, end: 20130131
  4. DEXAMETHAZON [Concomitant]
     Indication: ANTIALLERGIC THERAPY
     Route: 065
     Dates: start: 20130130, end: 20130131
  5. GRANISETRON [Concomitant]
     Indication: ANTIEMETIC SUPPORTIVE CARE
     Route: 065
     Dates: start: 20130130, end: 20130131
  6. METOCLOPRAMIDE [Concomitant]
     Indication: ANTIEMETIC SUPPORTIVE CARE
     Route: 065
     Dates: start: 20130130, end: 20130131

REACTIONS (2)
  - Febrile neutropenia [Recovered/Resolved]
  - Chills [Recovered/Resolved]
